FAERS Safety Report 15279945 (Version 1)
Quarter: 2018Q4

REPORT INFORMATION
  Report Type: Spontaneous
  Country: US (occurrence: US)
  Receive Date: 20180815
  Receipt Date: 20180815
  Transmission Date: 20190204
  Serious: No
  Sender: FDA-Public Use
  Company Number: US-JUBILANT PHARMA LTD-2018US000760

PATIENT
  Sex: Female

DRUGS (5)
  1. DRAXIMAGE MDP-25 [Suspect]
     Active Substance: TECHNETIUM TC-99M MEDRONATE
     Indication: BONE SCAN
     Dosage: 25 MCI, SINGLE DOSE
     Route: 042
     Dates: start: 20180703, end: 20180703
  2. NAPROXEN. [Concomitant]
     Active Substance: NAPROXEN
     Indication: MUSCLE STRAIN
  3. MOTRIN [Concomitant]
     Active Substance: IBUPROFEN
     Indication: LIGAMENT SPRAIN
  4. ALBUTEROL                          /00139501/ [Concomitant]
     Active Substance: ALBUTEROL
     Indication: SCAN
  5. XANAX [Concomitant]
     Active Substance: ALPRAZOLAM
     Indication: OSTEOARTHRITIS

REACTIONS (1)
  - Pruritus [Unknown]

NARRATIVE: CASE EVENT DATE: 20180703
